FAERS Safety Report 10346623 (Version 4)
Quarter: 2014Q4

REPORT INFORMATION
  Report Type: Report from Study
  Country: US (occurrence: US)
  Receive Date: 20140729
  Receipt Date: 20141027
  Transmission Date: 20150528
  Serious: Yes (Death, Hospitalization)
  Sender: FDA-Public Use
  Company Number: US-BIOGENIDEC-2014BI072980

PATIENT
  Age: 59 Year
  Sex: Female

DRUGS (7)
  1. AVONEX [Suspect]
     Active Substance: INTERFERON BETA-1A
     Indication: MULTIPLE SCLEROSIS
     Route: 030
     Dates: start: 20070118
  2. BACLOFEN. [Concomitant]
     Active Substance: BACLOFEN
  3. AVONEX [Suspect]
     Active Substance: INTERFERON BETA-1A
     Indication: MULTIPLE SCLEROSIS
     Route: 030
     Dates: start: 200308
  4. GABADONE [Concomitant]
  5. LACTULOSE. [Concomitant]
     Active Substance: LACTULOSE
  6. AVONEX [Suspect]
     Active Substance: INTERFERON BETA-1A
     Indication: MULTIPLE SCLEROSIS
     Route: 030
     Dates: end: 201407
  7. AVONEX [Suspect]
     Active Substance: INTERFERON BETA-1A
     Indication: MULTIPLE SCLEROSIS
     Route: 030
     Dates: start: 20020709, end: 200308

REACTIONS (3)
  - Multiple sclerosis [Fatal]
  - Dyspnoea [Unknown]
  - Paralysis [Unknown]

NARRATIVE: CASE EVENT DATE: 2007
